FAERS Safety Report 26181421 (Version 1)
Quarter: 2025Q4

REPORT INFORMATION
  Report Type: Report from Study
  Country: EU (occurrence: EU)
  Receive Date: 20251221
  Receipt Date: 20251221
  Transmission Date: 20260118
  Serious: Yes (Other)
  Sender: VERTEX
  Company Number: EU-VERTEX PHARMACEUTICALS-2024-017511

PATIENT
  Sex: Male
  Weight: 15 kg

DRUGS (7)
  1. ELEXACAFTOR\IVACAFTOR\TEZACAFTOR [Suspect]
     Active Substance: ELEXACAFTOR\IVACAFTOR\TEZACAFTOR
     Indication: Cystic fibrosis
     Dosage: 60 MG/40 MG/80 MG; ONE SACHET PER DAY
     Route: 061
     Dates: start: 20241002, end: 202410
  2. ELEXACAFTOR\IVACAFTOR\TEZACAFTOR [Suspect]
     Active Substance: ELEXACAFTOR\IVACAFTOR\TEZACAFTOR
     Dosage: 60 MG/40 MG/80 MG; HALF SACHET IN AM PER DAY
     Route: 061
     Dates: start: 20241024
  3. KALYDECO [Suspect]
     Active Substance: IVACAFTOR
     Indication: Cystic fibrosis
     Dosage: 59.5 MG; ONE SACHET PER DAY
     Route: 061
     Dates: start: 20241002, end: 202410
  4. KALYDECO [Suspect]
     Active Substance: IVACAFTOR
     Dosage: 59.5 MG; HALF SACHET IN PM IN PER DAY
     Route: 061
     Dates: start: 20241024
  5. CREON [Concomitant]
     Active Substance: PANCRELIPASE AMYLASE\PANCRELIPASE LIPASE\PANCRELIPASE PROTEASE
  6. URSODIOL [Concomitant]
     Active Substance: URSODIOL
  7. FLUTICASONE PROPIONATE [Concomitant]
     Active Substance: FLUTICASONE PROPIONATE

REACTIONS (10)
  - Agitation [Not Recovered/Not Resolved]
  - Initial insomnia [Recovering/Resolving]
  - Poor quality sleep [Recovering/Resolving]
  - Middle insomnia [Recovering/Resolving]
  - Anger [Recovering/Resolving]
  - Affect lability [Recovering/Resolving]
  - Sleep disorder [Not Recovered/Not Resolved]
  - Behaviour disorder [Not Recovered/Not Resolved]
  - Urticaria [Not Recovered/Not Resolved]
  - Drug level increased [Unknown]

NARRATIVE: CASE EVENT DATE: 20240101
